FAERS Safety Report 4774882-8 (Version None)
Quarter: 2005Q3

REPORT INFORMATION
  Report Type: 
  Country: None (occurrence: None)
  Receive Date: 20050919
  Receipt Date: 20050912
  Transmission Date: 20060218
  Serious: Yes (Disabling)
  Sender: FDA-Public Use
  Company Number: 2005042883

PATIENT
  Age: 50 Year
  Sex: Female

DRUGS (7)
  1. NEURONTIN [Suspect]
     Indication: NEUROPATHY
     Dosage: 300 MG (100 MG, 3 IN 1 D) ORAL
     Route: 048
     Dates: start: 20040908, end: 20050504
  2. PROCHLORPERAZINE [Concomitant]
  3. KYTRIL [Concomitant]
  4. OXYCODONE HCL [Concomitant]
  5. OXYCONTIN [Concomitant]
  6. LACTULOSE [Concomitant]
  7. TOPOTECAN [Concomitant]

REACTIONS (5)
  - OEDEMA [None]
  - PAIN IN EXTREMITY [None]
  - PHARMACEUTICAL PRODUCT COMPLAINT [None]
  - POOR QUALITY DRUG ADMINISTERED [None]
  - WEIGHT DECREASED [None]
